FAERS Safety Report 24066831 (Version 2)
Quarter: 2024Q4

REPORT INFORMATION
  Report Type: Spontaneous
  Country: PT (occurrence: PT)
  Receive Date: 20240709
  Receipt Date: 20241210
  Transmission Date: 20250115
  Serious: Yes (Hospitalization, Other)
  Sender: ALEXION PHARMACEUTICALS
  Company Number: 2024A155006

PATIENT
  Age: 43 Year

DRUGS (4)
  1. LYNPARZA [Suspect]
     Active Substance: OLAPARIB
     Indication: Neoplasm malignant
     Dosage: 300 MILLIGRAM, Q12H
  2. LYNPARZA [Suspect]
     Active Substance: OLAPARIB
     Dosage: 300 MILLIGRAM, Q12H
     Route: 048
  3. LYNPARZA [Suspect]
     Active Substance: OLAPARIB
     Dosage: 300 MILLIGRAM, Q12H
  4. LYNPARZA [Suspect]
     Active Substance: OLAPARIB
     Dosage: 300 MILLIGRAM, Q12H
     Route: 048

REACTIONS (11)
  - Nervous system disorder [Unknown]
  - Metastases to lymph nodes [Unknown]
  - Intracranial pressure increased [Unknown]
  - Carbohydrate antigen 125 increased [Unknown]
  - Phonophobia [Unknown]
  - Metastases to central nervous system [Unknown]
  - Photophobia [Unknown]
  - Decubitus ulcer [Unknown]
  - Vomiting [Unknown]
  - Dysarthria [Unknown]
  - Headache [Unknown]
